FAERS Safety Report 18032186 (Version 1)
Quarter: 2020Q3

REPORT INFORMATION
  Report Type: Spontaneous
  Country: AT (occurrence: AT)
  Receive Date: 20200716
  Receipt Date: 20200716
  Transmission Date: 20201103
  Serious: Yes (Other)
  Sender: FDA-Public Use
  Company Number: AT-JNJFOC-20200717623

PATIENT
  Age: 44 Year
  Sex: Male
  Weight: 71 kg

DRUGS (4)
  1. RIVAROXABAN [Suspect]
     Active Substance: RIVAROXABAN
     Indication: SPLENIC INFARCTION
  2. RIVAROXABAN [Suspect]
     Active Substance: RIVAROXABAN
     Indication: ANTICOAGULANT THERAPY
  3. RIVAROXABAN [Suspect]
     Active Substance: RIVAROXABAN
     Indication: RENAL VEIN OCCLUSION
     Dosage: 1XTGL. 20MG
     Route: 048
     Dates: start: 201809, end: 202006
  4. RIVAROXABAN [Suspect]
     Active Substance: RIVAROXABAN
     Indication: VENOUS THROMBOSIS LIMB

REACTIONS (1)
  - Mesenteric vein thrombosis [Unknown]

NARRATIVE: CASE EVENT DATE: 20200619
